FAERS Safety Report 7635268-1 (Version None)
Quarter: 2011Q3

REPORT INFORMATION
  Report Type: 
  Country: None (occurrence: None)
  Receive Date: 20110718
  Receipt Date: 20110701
  Transmission Date: 20111222
  Serious: Yes (Other)
  Sender: FDA-Public Use
  Company Number: AUR-APL-2011-04193

PATIENT
  Age: 58 Year
  Sex: Female

DRUGS (1)
  1. SIMVASTATIN [Suspect]
     Indication: PRODUCT USED FOR UNKNOWN INDICATION
     Dosage: (40 MG)
     Dates: start: 20100101, end: 20110601

REACTIONS (14)
  - DIARRHOEA [None]
  - AUTOIMMUNE DISORDER [None]
  - FATIGUE [None]
  - OEDEMA PERIPHERAL [None]
  - PRURITUS [None]
  - HEADACHE [None]
  - FACE OEDEMA [None]
  - PAIN [None]
  - ABDOMINAL PAIN UPPER [None]
  - SENSORY LOSS [None]
  - SKIN DISCOLOURATION [None]
  - DYSPNOEA [None]
  - RASH [None]
  - PERIPHERAL COLDNESS [None]
